FAERS Safety Report 4838403-3 (Version None)
Quarter: 2005Q4

REPORT INFORMATION
  Report Type: 
  Country: None (occurrence: None)
  Receive Date: 20051123
  Receipt Date: 20051111
  Transmission Date: 20060501
  Serious: Yes (Hospitalization)
  Sender: FDA-Public Use
  Company Number: 219429

PATIENT
  Age: 44 Year
  Sex: Male

DRUGS (1)
  1. RAPTIVA [Suspect]
     Indication: PSORIASIS
     Dosage: 1.2 ML, 1/WEEK, SUBCUTANEOUS
     Route: 058
     Dates: start: 20041101

REACTIONS (4)
  - CONDITION AGGRAVATED [None]
  - GUTTATE PSORIASIS [None]
  - PULMONARY EMBOLISM [None]
  - VIRAL UPPER RESPIRATORY TRACT INFECTION [None]
